FAERS Safety Report 4445387-9 (Version None)
Quarter: 2004Q3

REPORT INFORMATION
  Report Type: 
  Country: None (occurrence: None)
  Receive Date: 20040729
  Receipt Date: 20030926
  Transmission Date: 20050211
  Serious: Yes (Hospitalization)
  Sender: FDA-Public Use
  Company Number: 2003UW12308

PATIENT
  Age: 43 Year
  Sex: Male

DRUGS (2)
  1. ELAVIL [Suspect]
     Indication: DEPRESSION
  2. CLOMIPRAMINE HCL [Concomitant]

REACTIONS (1)
  - SEROTONIN SYNDROME [None]
